FAERS Safety Report 8472877-4 (Version None)
Quarter: 2012Q2

REPORT INFORMATION
  Report Type: 
  Country: None (occurrence: None)
  Receive Date: 20120627
  Receipt Date: 20120220
  Transmission Date: 20120825
  Serious: No
  Sender: FDA-Public Use
  Company Number: US-MYLANLABS-2012S1004080

PATIENT
  Sex: Male

DRUGS (3)
  1. OMEPRAZOLE [Suspect]
     Indication: GASTROOESOPHAGEAL REFLUX DISEASE
     Route: 048
     Dates: start: 20120201, end: 20120220
  2. LIPITOR [Concomitant]
  3. DIOVAN [Concomitant]

REACTIONS (3)
  - FLUSHING [None]
  - BURNING SENSATION [None]
  - HYPOAESTHESIA [None]
